FAERS Safety Report 5096510-7 (Version None)
Quarter: 2006Q3

REPORT INFORMATION
  Report Type: 
  Country: None (occurrence: None)
  Receive Date: 20060830
  Receipt Date: 20060825
  Transmission Date: 20061208
  Serious: Yes (Life-Threatening)
  Sender: FDA-Public Use
  Company Number: USA-2006-0024812

PATIENT
  Age: 3 Year
  Sex: Male

DRUGS (10)
  1. CEFDITOREN PIVOXIL (SIMILAR TO NDA 21-222)(CEFDITOREN  PIVOXIL) OTHER [Suspect]
     Indication: TONSILLITIS
     Dosage: 100 MG, DAILY; ORAL
     Route: 048
     Dates: start: 20060727, end: 20060727
  2. SAWATENE (CARBOCISTEINE) [Concomitant]
  3. NAUZELIN (DOMPERIDONE) [Concomitant]
  4. LEBENIN (LACTOBACILLUS ACIDOPHILUS, LACTOBACILLUS BIFIDUS, LYOPHILIZED [Concomitant]
  5. MIYA-BM [Concomitant]
  6. PERIACTIN [Concomitant]
  7. INTAL [Concomitant]
  8. ZADITEN [Concomitant]
  9. TELBANS [Concomitant]
  10. ONON [Concomitant]

REACTIONS (3)
  - ANAPHYLACTOID REACTION [None]
  - DIARRHOEA [None]
  - VOMITING [None]
